FAERS Safety Report 6283158-1 (Version None)
Quarter: 2009Q3

REPORT INFORMATION
  Report Type: 
  Country: None (occurrence: None)
  Receive Date: 20090724
  Receipt Date: 20090715
  Transmission Date: 20100115
  Serious: Yes (Death, Hospitalization)
  Sender: FDA-Public Use
  Company Number: B0578713A

PATIENT
  Age: 79 Year
  Sex: Male

DRUGS (5)
  1. REQUIP [Suspect]
     Indication: PARKINSON'S DISEASE
     Dosage: 32MG PER DAY
     Route: 048
     Dates: start: 20090605, end: 20090609
  2. LEVODOPA + BENSERAZIDE [Concomitant]
  3. ACETYLSALICYLIC ACID [Concomitant]
  4. BOI K [Concomitant]
  5. OMEPRAZOLE [Concomitant]

REACTIONS (26)
  - ACCIDENTAL OVERDOSE [None]
  - AGITATION [None]
  - ANURIA [None]
  - ARRHYTHMIA [None]
  - ATRIAL FIBRILLATION [None]
  - CARDIAC FAILURE [None]
  - CONFUSIONAL STATE [None]
  - DISORIENTATION [None]
  - DYSCHEZIA [None]
  - DYSKINESIA [None]
  - HAEMODYNAMIC INSTABILITY [None]
  - HEPATIC FAILURE [None]
  - HEPATOTOXICITY [None]
  - HYPONATRAEMIA [None]
  - HYPOPERFUSION [None]
  - HYPOTENSION [None]
  - HYPOXIA [None]
  - METABOLIC ACIDOSIS [None]
  - MULTI-ORGAN FAILURE [None]
  - NEPHROPATHY TOXIC [None]
  - PALPITATIONS [None]
  - POLYURIA [None]
  - PROTHROMBIN TIME ABNORMAL [None]
  - RENAL FAILURE ACUTE [None]
  - RESPIRATORY DISORDER [None]
  - TACHYPNOEA [None]
